FAERS Safety Report 4300555-1 (Version None)
Quarter: 2004Q1

REPORT INFORMATION
  Report Type: 
  Country: None (occurrence: None)
  Receive Date: 20040218
  Receipt Date: 20040211
  Transmission Date: 20041129
  Serious: Yes (Hospitalization, Other)
  Sender: FDA-Public Use
  Company Number: 2004-02-0643

PATIENT
  Sex: Female

DRUGS (2)
  1. AERIUS (DESLORATADINE) TABLETS  LIKE CLARINEX [Suspect]
     Indication: URTICARIA CHRONIC
     Dosage: 1 TAB Q DAY ORAL
     Route: 048
     Dates: start: 20030801, end: 20031101
  2. NONSTEROIDAL ANTI-INFLAMMATORY AGENT (NOS) [Concomitant]

REACTIONS (3)
  - AUTOIMMUNE HEPATITIS [None]
  - HEPATIC FAILURE [None]
  - HEPATITIS TOXIC [None]
